FAERS Safety Report 5815092-2 (Version None)
Quarter: 2008Q3

REPORT INFORMATION
  Report Type: 
  Country: None (occurrence: None)
  Receive Date: 20080718
  Receipt Date: 20080710
  Transmission Date: 20090109
  Serious: Yes (Other)
  Sender: FDA-Public Use
  Company Number: FR-MERCK-0801FRA00044

PATIENT
  Age: 52 Year
  Sex: Male

DRUGS (11)
  1. ISENTRESS [Suspect]
     Indication: HIV INFECTION
     Route: 048
     Dates: start: 20071108, end: 20080111
  2. ISENTRESS [Suspect]
     Route: 048
     Dates: start: 20080626
  3. DARUNAVIR [Suspect]
     Indication: HIV INFECTION
     Route: 048
     Dates: start: 20071108, end: 20080111
  4. DARUNAVIR [Suspect]
     Route: 048
     Dates: start: 20080626
  5. ETRAVIRINE [Suspect]
     Indication: HIV INFECTION
     Route: 048
     Dates: start: 20071108, end: 20080111
  6. ETRAVIRINE [Suspect]
     Route: 048
     Dates: start: 20080626
  7. RITONAVIR [Suspect]
     Indication: HIV INFECTION
     Route: 048
     Dates: start: 20000315, end: 20080111
  8. RITONAVIR [Suspect]
     Route: 048
     Dates: start: 20080626
  9. FENOFIBRATE [Suspect]
     Indication: DYSLIPIDAEMIA
     Route: 048
     Dates: start: 20000301, end: 20080111
  10. PERINDOPRIL ARGININE [Concomitant]
     Indication: HYPERTENSION
     Route: 048
     Dates: start: 20060501
  11. BROMAZEPAM [Concomitant]
     Indication: ANXIETY
     Route: 048

REACTIONS (1)
  - MYOSITIS [None]
